FAERS Safety Report 5950411-8 (Version None)
Quarter: 2008Q4

REPORT INFORMATION
  Report Type: 
  Country: None (occurrence: None)
  Receive Date: 20081112
  Receipt Date: 20081030
  Transmission Date: 20090506
  Serious: Yes (Life-Threatening, Hospitalization)
  Sender: FDA-Public Use
  Company Number: DE-GENENTECH-271211

PATIENT
  Sex: Female

DRUGS (5)
  1. MABTHERA [Suspect]
     Indication: LYMPHOMA
     Dosage: UNK
     Route: 042
     Dates: start: 20070423, end: 20070903
  2. CYCLOPHOSPHAMIDE [Concomitant]
     Indication: LYMPHOMA
     Dosage: UNK
  3. DOXORUBICIN HCL [Concomitant]
     Indication: LYMPHOMA
     Dosage: UNK
  4. PREDNISONE TAB [Concomitant]
     Indication: LYMPHOMA
     Dosage: UNK
  5. VINCRISTINE [Concomitant]
     Indication: LYMPHOMA
     Dosage: UNK

REACTIONS (2)
  - METASTASIS [None]
  - RENAL CELL CARCINOMA RECURRENT [None]
